FAERS Safety Report 8486896-5 (Version None)
Quarter: 2012Q3

REPORT INFORMATION
  Report Type: 
  Country: None (occurrence: None)
  Receive Date: 20120704
  Receipt Date: 20120702
  Transmission Date: 20120928
  Serious: Yes (Death)
  Sender: FDA-Public Use
  Company Number: US-ELI_LILLY_AND_COMPANY-US201207000312

PATIENT
  Age: 58 Year
  Sex: Male
  Weight: 58.05 kg

DRUGS (2)
  1. EFFIENT [Suspect]
     Indication: STENT PLACEMENT
     Dosage: 10 MG, UNK
     Dates: start: 20120606
  2. ASPIRIN [Concomitant]
     Dosage: 325 MG, UNK

REACTIONS (1)
  - DEVICE OCCLUSION [None]
